FAERS Safety Report 5273361-1 (Version None)
Quarter: 2007Q1

REPORT INFORMATION
  Report Type: 
  Country: None (occurrence: None)
  Receive Date: 20070322
  Receipt Date: 20070314
  Transmission Date: 20070707
  Serious: Yes (Other)
  Sender: FDA-Public Use
  Company Number: US-ELI_LILLY_AND_COMPANY-US200703002963

PATIENT
  Age: 78 Year
  Sex: Female

DRUGS (7)
  1. FORTEO [Suspect]
     Indication: OSTEOPOROSIS
     Dosage: 20 UG, DAILY (1/D)
     Dates: start: 20050401, end: 20050501
  2. FORTEO [Suspect]
     Dosage: 20 UG, DAILY (1/D)
     Dates: start: 20070201
  3. COUMADIN [Concomitant]
     Indication: ANTICOAGULANT THERAPY
  4. MULTI-VITAMIN [Concomitant]
     Dosage: UNK, DAILY (1/D)
  5. ASPIRIN [Concomitant]
     Dosage: 81 MG, UNK
  6. COZAAR [Concomitant]
     Indication: HYPERTENSION
     Dosage: 25 MG, UNK
  7. OXYGEN [Concomitant]

REACTIONS (3)
  - GALLBLADDER OPERATION [None]
  - IRRITABILITY [None]
  - PULMONARY EMBOLISM [None]
